FAERS Safety Report 4655522-5 (Version None)
Quarter: 2005Q2

REPORT INFORMATION
  Report Type: 
  Country: None (occurrence: None)
  Receive Date: 20050505
  Receipt Date: 20050422
  Transmission Date: 20051028
  Serious: Yes (Death, Hospitalization)
  Sender: FDA-Public Use
  Company Number: 0500046EN0020P

PATIENT
  Age: 5 Year
  Sex: Male
  Weight: 17 kg

DRUGS (7)
  1. ONCASPAR [Suspect]
     Indication: ACUTE LYMPHOCYTIC LEUKAEMIA
     Dosage: 1750 IU IM
     Route: 030
     Dates: start: 20010709, end: 20010709
  2. METHOTREXATE [Concomitant]
  3. ZOFRAN [Concomitant]
  4. VINCRISTINE [Concomitant]
  5. DOXORUBICIN [Concomitant]
  6. DEXAMETHASONE [Concomitant]
  7. BACTRIM [Concomitant]

REACTIONS (6)
  - CARDIAC ARREST [None]
  - COAGULOPATHY [None]
  - FEBRILE NEUTROPENIA [None]
  - HYPERKALAEMIA [None]
  - METABOLIC ACIDOSIS [None]
  - SEPTIC SHOCK [None]
